FAERS Safety Report 6545705-1 (Version None)
Quarter: 2010Q1

REPORT INFORMATION
  Report Type: 
  Country: None (occurrence: None)
  Receive Date: 20100121
  Receipt Date: 20100112
  Transmission Date: 20100710
  Serious: Yes (Other)
  Sender: FDA-Public Use
  Company Number: PHEH2010US00797

PATIENT
  Sex: Female

DRUGS (1)
  1. GLEEVEC [Suspect]

REACTIONS (3)
  - ASTHMA [None]
  - DYSPNOEA [None]
  - GRAFT VERSUS HOST DISEASE [None]
